FAERS Safety Report 8423400-1 (Version None)
Quarter: 2012Q2

REPORT INFORMATION
  Report Type: 
  Country: None (occurrence: None)
  Receive Date: 20120608
  Receipt Date: 20120608
  Transmission Date: 20120825
  Serious: Yes (Other)
  Sender: FDA-Public Use
  Company Number: FR-SP-2012-02687

PATIENT
  Sex: Male

DRUGS (8)
  1. TENORDATE (ATENOLOL) [Concomitant]
  2. ASASANTINE 200 (DIPYRIDAMOLE/ACETYLSALICYLIC ACID) [Concomitant]
  3. IMMUCYST [Suspect]
     Indication: BLADDER CANCER
     Route: 043
     Dates: start: 20111207, end: 20120111
  4. TANAKAN (GINGKO BILOBA) [Concomitant]
  5. TAHOR (ATOVASTATIN) [Concomitant]
  6. DIOVENOR (DIOSMINE) [Concomitant]
  7. QUINAPRIL HYDROCHLORIDE AND HYDROCHLOROTHIAZDE [Concomitant]
  8. ALLOPURINOL 200 [Concomitant]

REACTIONS (3)
  - ARTHRITIS [None]
  - ARTHRALGIA [None]
  - MICTURITION URGENCY [None]
